FAERS Safety Report 4551764-8 (Version None)
Quarter: 2005Q1

REPORT INFORMATION
  Report Type: 
  Country: None (occurrence: None)
  Receive Date: 20050113
  Receipt Date: 20050107
  Transmission Date: 20050727
  Serious: Yes (Other)
  Sender: FDA-Public Use
  Company Number: US-GLAXOSMITHKLINE-A0540463A

PATIENT
  Sex: Female

DRUGS (1)
  1. LAMICTAL [Suspect]
     Indication: DRUG USE FOR UNKNOWN INDICATION
     Route: 048
     Dates: start: 20040715, end: 20040907

REACTIONS (17)
  - AMNESIA [None]
  - ANOREXIA [None]
  - BALANCE DISORDER [None]
  - BEDRIDDEN [None]
  - BLOOD TEST ABNORMAL [None]
  - CONVULSION [None]
  - DYSKINESIA [None]
  - NAUSEA [None]
  - NIGHTMARE [None]
  - PRURITUS [None]
  - PYREXIA [None]
  - RASH [None]
  - RASH GENERALISED [None]
  - SKIN DISORDER [None]
  - SLEEP DISORDER [None]
  - TREMOR [None]
  - VOMITING [None]
